FAERS Safety Report 16439933 (Version 1)
Quarter: 2019Q3

REPORT INFORMATION
  Report Type: Spontaneous
  Country: US (occurrence: US)
  Receive Date: 20190616
  Receipt Date: 20190616
  Transmission Date: 20191004
  Serious: Yes (Other)
  Sender: FDA-Public Use
  Company Number: None

PATIENT
  Age: 48 Year
  Sex: Female
  Weight: 87.75 kg

DRUGS (1)
  1. CVS HEALTH AGE DEFENSE SPF 70 FACE [Suspect]
     Active Substance: AVOBENZONE\HOMOSALATE\OCTISALATE\OCTOCRYLENE\OXYBENZONE
     Indication: PROPHYLAXIS AGAINST SOLAR RADIATION
     Route: 061
     Dates: start: 20190615, end: 20190615

REACTIONS (3)
  - Application site hypersensitivity [None]
  - Application site vesicles [None]
  - Application site burn [None]

NARRATIVE: CASE EVENT DATE: 20190615
